FAERS Safety Report 6758965-9 (Version None)
Quarter: 2010Q2

REPORT INFORMATION
  Report Type: 
  Country: None (occurrence: None)
  Receive Date: 20100607
  Receipt Date: 20100601
  Transmission Date: 20101027
  Serious: Yes (Hospitalization)
  Sender: FDA-Public Use
  Company Number: US-BRISTOL-MYERS SQUIBB COMPANY-15129232

PATIENT

DRUGS (1)
  1. ONGLYZA [Suspect]

REACTIONS (2)
  - LIP SWELLING [None]
  - OEDEMA [None]
